FAERS Safety Report 8014827-0 (Version None)
Quarter: 2011Q4

REPORT INFORMATION
  Report Type: 
  Country: None (occurrence: None)
  Receive Date: 20111229
  Receipt Date: 20111226
  Transmission Date: 20120403
  Serious: Yes (Hospitalization)
  Sender: FDA-Public Use
  Company Number: JP-ROCHE-749088

PATIENT
  Sex: Female

DRUGS (14)
  1. SULFAMETHOXAZOLE AND TRIMETHOPRIM [Concomitant]
     Route: 048
  2. RABEPRAZOLE SODIUM [Concomitant]
     Dosage: DRUG: PARIET (SODIUM RABEPRAZOLE)
     Route: 048
  3. RHEUMATREX [Concomitant]
     Route: 048
  4. SELBEX [Concomitant]
     Dosage: FORM: PERORAL AGENT
     Route: 048
  5. SHIN-BIOFERMIN S [Concomitant]
     Dosage: FORM: PERORAL AGENT
     Route: 048
  6. NABOAL [Concomitant]
     Route: 048
  7. METHOTREXATE [Concomitant]
     Route: 048
  8. FOLIC ACID [Concomitant]
     Dosage: FORM; PERORAL AGENT
     Route: 048
  9. ACTEMRA [Suspect]
     Indication: RHEUMATOID ARTHRITIS
     Route: 041
     Dates: start: 20101006, end: 20101202
  10. PREDNISOLONE [Concomitant]
     Route: 048
  11. DEPAS [Concomitant]
     Dosage: FORM: PERORAL AGENT
     Route: 048
  12. HALCION [Concomitant]
     Route: 048
  13. VOLTAREN [Concomitant]
     Dosage: ROUTE: SUPPOSITORIAE RECTALE
     Route: 054
  14. FOSAMAX [Concomitant]
     Dosage: DRUG: FOSAMAC (ALENDRONATE SODIUM HYDRATE)
     Route: 048

REACTIONS (2)
  - CEREBRAL HAEMORRHAGE [None]
  - SUBARACHNOID HAEMORRHAGE [None]
